FAERS Safety Report 12069127 (Version 2)
Quarter: 2016Q1

REPORT INFORMATION
  Report Type: Report from Study
  Country: US (occurrence: US)
  Receive Date: 20160211
  Receipt Date: 20160316
  Transmission Date: 20160526
  Serious: No
  Sender: FDA-Public Use
  Company Number: US-AMGEN-USASL2016015643

PATIENT
  Age: 49 Year
  Sex: Female

DRUGS (1)
  1. ENBREL [Suspect]
     Active Substance: ETANERCEPT
     Indication: ANKYLOSING SPONDYLITIS
     Dosage: 50 MG, X 1 WEEKLY
     Route: 065
     Dates: start: 201510, end: 20160206

REACTIONS (3)
  - Injection site pruritus [Unknown]
  - No therapeutic response [Unknown]
  - Injection site swelling [Unknown]
